FAERS Safety Report 6388942-1 (Version None)
Quarter: 2009Q4

REPORT INFORMATION
  Report Type: 
  Country: None (occurrence: None)
  Receive Date: 20091005
  Receipt Date: 20090921
  Transmission Date: 20100525
  Serious: Yes (Other)
  Sender: FDA-Public Use
  Company Number: GB-GENENTECH-291257

PATIENT

DRUGS (16)
  1. RITUXIMAB [Suspect]
     Indication: ANTI-NEUTROPHIL CYTOPLASMIC ANTIBODY POSITIVE VASCULITIS
     Dosage: 375 MG/M2, 1/WEEK
     Route: 065
  2. MYCOPHENOLATE MOFETIL [Suspect]
     Indication: IMMUNOSUPPRESSION
     Dosage: 2 G, UNK
     Route: 065
  3. SULFAMETHOXAZOLE [Suspect]
     Indication: DRUG USE FOR UNKNOWN INDICATION
     Dosage: UNK G, UNK
     Route: 065
  4. AZATHIOPRINE [Suspect]
     Indication: IMMUNOSUPPRESSION
     Dosage: 75 MG, UNK
     Route: 065
  5. MYCOPHENOLATE SODIUM [Suspect]
     Indication: IMMUNOSUPPRESSION
     Dosage: 2.16 G, UNK
     Route: 065
  6. DEOXYSPERGUALIN [Suspect]
     Indication: IMMUNOSUPPRESSION
     Route: 065
  7. CYCLOPHOSPHAMIDE [Suspect]
     Indication: IMMUNOSUPPRESSION
     Dosage: 0.9 G, UNK
     Route: 042
  8. METHOTREXATE [Suspect]
     Indication: IMMUNOSUPPRESSION
     Dosage: 20 MG, UNK
     Route: 065
  9. CAMPATH [Suspect]
     Indication: IMMUNOSUPPRESSION
     Route: 065
  10. CYCLOSPORINE [Suspect]
     Indication: IMMUNOSUPPRESSION
     Route: 065
  11. INFLIXIMAB [Suspect]
     Indication: IMMUNOSUPPRESSION
     Route: 065
  12. DAPSONE [Suspect]
     Indication: IMMUNOSUPPRESSION
     Route: 065
  13. IMMUNE GLOBULIN INTRAVENOUS (HUMAN) [Suspect]
     Indication: IMMUNOSUPPRESSION
     Route: 042
  14. ETANERCEPT [Suspect]
     Indication: IMMUNOSUPPRESSION
     Route: 065
  15. AMLODIPINE [Suspect]
     Indication: DRUG USE FOR UNKNOWN INDICATION
     Route: 065
  16. PREDNISOLONE [Suspect]
     Indication: IMMUNOSUPPRESSION
     Dosage: 12.5 MG, UNK
     Route: 065

REACTIONS (20)
  - ADRENOCORTICAL INSUFFICIENCY ACUTE [None]
  - ANKLE OPERATION [None]
  - AORTIC VALVE REPLACEMENT [None]
  - ASTHMA [None]
  - B-LYMPHOCYTE COUNT INCREASED [None]
  - BRONCHIAL DISORDER [None]
  - BRONCHOPULMONARY ASPERGILLOSIS [None]
  - CELLULITIS [None]
  - DEVICE RELATED SEPSIS [None]
  - EYE OPERATION [None]
  - GRANULOMA [None]
  - HIP SURGERY [None]
  - MENINGITIS ASEPTIC [None]
  - NEUROPATHY PERIPHERAL [None]
  - NEUTROPENIA [None]
  - PNEUMONIA [None]
  - PSEUDOMONAS INFECTION [None]
  - PULMONARY EMBOLISM [None]
  - RESPIRATORY DISORDER [None]
  - SEPSIS [None]
